FAERS Safety Report 4594899-6 (Version None)
Quarter: 2005Q1

REPORT INFORMATION
  Report Type: 
  Country: None (occurrence: None)
  Receive Date: 20050224
  Receipt Date: 20031015
  Transmission Date: 20050727
  Serious: Yes (Hospitalization)
  Sender: FDA-Public Use
  Company Number: GXKR2003US00605

PATIENT
  Age: 13 Year
  Sex: Male

DRUGS (2)
  1. FLUOXETINE [Suspect]
     Indication: SCHIZOAFFECTIVE DISORDER
     Dosage: 60 MG, QD
  2. ARIPIPRAZOLE (ARIPIPRAZOLE) [Concomitant]
     Indication: SCHIZOAFFECTIVE DISORDER
     Dosage: 60 MG, QD

REACTIONS (11)
  - BLUNTED AFFECT [None]
  - COGNITIVE DISORDER [None]
  - DELUSION [None]
  - DRUG INTERACTION [None]
  - DRUG LEVEL INCREASED [None]
  - HALLUCINATIONS, MIXED [None]
  - HYPOACUSIS [None]
  - SENSORY LOSS [None]
  - SOMNOLENCE [None]
  - SPEECH DISORDER [None]
  - SUICIDE ATTEMPT [None]
